FAERS Safety Report 16451245 (Version 1)
Quarter: 2019Q2

REPORT INFORMATION
  Report Type: Spontaneous
  Country: US (occurrence: US)
  Receive Date: 20190509
  Receipt Date: 20190509
  Transmission Date: 20190711
  Serious: No
  Sender: FDA-Public Use
  Company Number: None

PATIENT
  Sex: Female

DRUGS (5)
  1. VIGABATRIN. [Suspect]
     Active Substance: VIGABATRIN
     Indication: EPILEPSY
     Route: 048
     Dates: start: 20190422
  2. ZONEGRAN [Concomitant]
     Active Substance: ZONISAMIDE
  3. SABRIL [Concomitant]
     Active Substance: VIGABATRIN
  4. BRIVIACT [Concomitant]
     Active Substance: BRIVARACETAM
  5. EPIOLEX [Concomitant]

REACTIONS (1)
  - Seizure [None]
